FAERS Safety Report 5248895-6 (Version None)
Quarter: 2007Q1

REPORT INFORMATION
  Report Type: 
  Country: None (occurrence: None)
  Receive Date: 20070228
  Receipt Date: 20060412
  Transmission Date: 20070707
  Serious: No
  Sender: FDA-Public Use
  Company Number: US-GLAXOSMITHKLINE-A0601562A

PATIENT
  Sex: Male

DRUGS (2)
  1. VALTREX [Suspect]
     Dosage: 1G PER DAY
     Route: 048
  2. NO CONCURRENT MEDICATION [Concomitant]

REACTIONS (5)
  - CONTUSION [None]
  - FATIGUE [None]
  - LOCAL SWELLING [None]
  - MEMORY IMPAIRMENT [None]
  - SPEECH DISORDER [None]
